FAERS Safety Report 5744838-7 (Version None)
Quarter: 2008Q2

REPORT INFORMATION
  Report Type: 
  Country: None (occurrence: None)
  Receive Date: 20080520
  Receipt Date: 20080515
  Transmission Date: 20081010
  Serious: Yes (Death, Other)
  Sender: FDA-Public Use
  Company Number: CA-PFIZER INC-2008042201

PATIENT
  Sex: Female

DRUGS (5)
  1. ATORVASTATIN CALCIUM [Suspect]
     Route: 048
  2. PAROXETINE HCL [Suspect]
     Route: 048
  3. VITAMIN B1 [Suspect]
     Route: 048
  4. ACETYLSALICYLIC ACID SRT [Suspect]
     Route: 048
  5. CHLORAMBUCIL [Suspect]
     Route: 048

REACTIONS (3)
  - PNEUMONIA [None]
  - PROGRESSIVE MULTIFOCAL LEUKOENCEPHALOPATHY [None]
  - RESPIRATORY FAILURE [None]
